FAERS Safety Report 4776790-5 (Version None)
Quarter: 2005Q3

REPORT INFORMATION
  Report Type: 
  Country: None (occurrence: None)
  Receive Date: 20050923
  Receipt Date: 20050809
  Transmission Date: 20060218
  Serious: Yes (Other)
  Sender: FDA-Public Use
  Company Number: 2005PK01496

PATIENT
  Weight: 1.5 kg

DRUGS (2)
  1. ATENOLOL [Suspect]
     Indication: CARDIAC FAILURE
     Dates: start: 20050808, end: 20050808
  2. ATENOLOL [Suspect]
     Indication: CONGENITAL PULMONARY VALVE ATRESIA
     Dates: start: 20050808, end: 20050808

REACTIONS (5)
  - ACCIDENTAL OVERDOSE [None]
  - BRADYCARDIA [None]
  - BRADYCARDIA NEONATAL [None]
  - HYPOGLYCAEMIA NEONATAL [None]
  - MEDICATION ERROR [None]
